FAERS Safety Report 9280984 (Version 4)
Quarter: 2013Q2

REPORT INFORMATION
  Report Type: Report from Study
  Country: US (occurrence: US)
  Receive Date: 20130509
  Receipt Date: 20130531
  Transmission Date: 20140414
  Serious: Yes (Hospitalization)
  Sender: FDA-Public Use
  Company Number: US-JNJFOC-20130500998

PATIENT
  Age: 16 Year
  Sex: Male
  Weight: 57 kg

DRUGS (6)
  1. REMICADE [Suspect]
     Indication: CROHN^S DISEASE
     Route: 042
     Dates: start: 20130517
  2. REMICADE [Suspect]
     Indication: CROHN^S DISEASE
     Route: 042
     Dates: start: 20110708
  3. FLEXERIL [Concomitant]
     Indication: BACK INJURY
     Route: 065
  4. IBUPROFEN [Concomitant]
     Indication: BACK INJURY
     Route: 065
  5. TORADOL [Concomitant]
     Indication: BACK INJURY
     Route: 065
  6. MULTIVITAMINS [Concomitant]
     Route: 065

REACTIONS (2)
  - Stevens-Johnson syndrome [Recovered/Resolved]
  - Herpes simplex [Recovered/Resolved with Sequelae]
